FAERS Safety Report 18092641 (Version 1)
Quarter: 2020Q3

REPORT INFORMATION
  Report Type: Spontaneous
  Country: US (occurrence: US)
  Receive Date: 20200730
  Receipt Date: 20200730
  Transmission Date: 20201103
  Serious: No
  Sender: FDA-Public Use
  Company Number: None

PATIENT
  Age: 50 Year
  Sex: Female
  Weight: 65.25 kg

DRUGS (9)
  1. DUPIXENT [Suspect]
     Active Substance: DUPILUMAB
     Indication: DERMATITIS ATOPIC
     Dosage: ?          OTHER FREQUENCY:EVERY 2 WEEKS;?
     Route: 058
     Dates: start: 20190618, end: 20200727
  2. FLEXERIL [Concomitant]
     Active Substance: CYCLOBENZAPRINE HYDROCHLORIDE
  3. ERGOCALCIFEROL. [Concomitant]
     Active Substance: ERGOCALCIFEROL
  4. NAPROXEN. [Concomitant]
     Active Substance: NAPROXEN
  5. CLARITIN [Concomitant]
     Active Substance: LORATADINE
  6. MELOXICAM. [Concomitant]
     Active Substance: MELOXICAM
  7. DIPHENHYDRAMINE. [Concomitant]
     Active Substance: DIPHENHYDRAMINE
  8. SENNA [Concomitant]
     Active Substance: SENNA LEAF\SENNOSIDES\SENNOSIDES A AND B
  9. MYOCALM [Concomitant]
     Active Substance: HERBALS\MINERALS\VITAMINS

REACTIONS (2)
  - Therapy interrupted [None]
  - Arthralgia [None]

NARRATIVE: CASE EVENT DATE: 20200727
